FAERS Safety Report 6285352 (Version 5)
Quarter: 2020Q3

REPORT INFORMATION
  Report Type: Report from Study
  Country: US (occurrence: US)
  Receive Date: 20070411
  Receipt Date: 20080801
  Transmission Date: 20201104
  Serious: Yes (Life-Threatening, Hospitalization, Other)
  Sender: FDA-Public Use
  Company Number: HQWYE934209APR07

PATIENT
  Age: 48 Year
  Sex: Male
  Weight: 69 kg

DRUGS (5)
  1. ACTIGALL [Concomitant]
     Active Substance: URSODIOL
     Indication: CHOLELITHIASIS
     Route: 048
     Dates: start: 20060405
  2. ARANESP [Concomitant]
     Active Substance: DARBEPOETIN ALFA
     Indication: ANAEMIA
     Route: 042
     Dates: start: 20070205
  3. BACTRIM DS [Concomitant]
     Active Substance: SULFAMETHOXAZOLE\TRIMETHOPRIM
     Indication: INFECTION PROPHYLAXIS
     Route: 048
     Dates: start: 20040801
  4. NEORAL [Suspect]
     Active Substance: CYCLOSPORINE
     Indication: PROPHYLAXIS AGAINST TRANSPLANT REJECTION
     Route: 048
     Dates: start: 20050930
  5. NEORAL [Suspect]
     Active Substance: CYCLOSPORINE
     Dosage: ^1 CAPSULE DAILY, 2 TABS EVERY OTHER DAY^
     Route: 048

REACTIONS (3)
  - Cholangitis sclerosing [Recovered/Resolved]
  - Chronic kidney disease [Not Recovered/Not Resolved]
  - Anaemia [Recovered/Resolved]

NARRATIVE: CASE EVENT DATE: 20060926
